FAERS Safety Report 17811188 (Version 1)
Quarter: 2020Q2

REPORT INFORMATION
  Report Type: Spontaneous
  Country: US (occurrence: US)
  Receive Date: 20200520
  Receipt Date: 20200520
  Transmission Date: 20200714
  Serious: Yes (Death, Life-Threatening, Hospitalization, Other)
  Sender: FDA-Public Use
  Company Number: None

PATIENT
  Age: 54 Year
  Sex: Female
  Weight: 108.6 kg

DRUGS (4)
  1. ^NSAIDS^ UNKNOWN TYPE AND DOSE [Concomitant]
  2. DULAGLUTIDE. [Suspect]
     Active Substance: DULAGLUTIDE
     Indication: DIABETES MELLITUS
     Dosage: ?
     Route: 058
     Dates: start: 20190726, end: 20200415
  3. METFORMIN [Suspect]
     Active Substance: METFORMIN HYDROCHLORIDE
     Indication: DIABETES MELLITUS
     Route: 048
     Dates: start: 20160917, end: 20200415
  4. LISINOPRIL 30 MG DAILY [Concomitant]
     Dates: start: 20160914, end: 20200415

REACTIONS (11)
  - Lactic acidosis [None]
  - Hyperkalaemia [None]
  - Diarrhoea [None]
  - Dehydration [None]
  - Electrocardiogram abnormal [None]
  - Shock [None]
  - Gastrointestinal haemorrhage [None]
  - Vomiting [None]
  - Dialysis [None]
  - Acute kidney injury [None]
  - Nausea [None]

NARRATIVE: CASE EVENT DATE: 20200415
